FAERS Safety Report 24583725 (Version 1)
Quarter: 2024Q4

REPORT INFORMATION
  Report Type: Spontaneous
  Country: US (occurrence: US)
  Receive Date: 20241106
  Receipt Date: 20241106
  Transmission Date: 20250115
  Serious: Yes (Other)
  Sender: BIOCODEX
  Company Number: US-BIOCODEX2-2024001600

PATIENT
  Age: 10 Year
  Sex: Male
  Weight: 27 kg

DRUGS (4)
  1. DIACOMIT [Suspect]
     Active Substance: STIRIPENTOL
     Indication: Severe myoclonic epilepsy of infancy
     Dosage: DAYS 1 THROUGH 7: TAKE 250 MG (ONE OF THE 250 MG CAPSULES) BY MOUTH TWICE DAILY.
     Route: 048
     Dates: start: 20220730
  2. DIACOMIT [Suspect]
     Active Substance: STIRIPENTOL
     Indication: Severe myoclonic epilepsy of infancy
     Dosage: DAYS 8 THROUGH 14: TAKE 250 MG (ONE OF THE 250 MG CAPSULES IN THE EVENING) BY MOUTH ONCE DAILY.
     Route: 048
     Dates: start: 20220730
  3. DIACOMIT [Suspect]
     Active Substance: STIRIPENTOL
     Indication: Severe myoclonic epilepsy of infancy
     Dosage: DAYS 8 THROUGH 14: TAKE 250 MG (ONE OF THE 250 MG CAPSULES IN THE EVENING) BY MOUTH ONCE DAILY.
     Route: 048
     Dates: start: 20220730
  4. DIACOMIT [Suspect]
     Active Substance: STIRIPENTOL
     Indication: Severe myoclonic epilepsy of infancy
     Dosage: DAYS 15 AND THEREAFTER: STOP MEDICATION.
     Route: 048
     Dates: start: 20220730

REACTIONS (1)
  - Seizure [Recovered/Resolved]

NARRATIVE: CASE EVENT DATE: 20241025
